FAERS Safety Report 15865918 (Version 3)
Quarter: 2019Q2

REPORT INFORMATION
  Report Type: Report from Study
  Country: US (occurrence: US)
  Receive Date: 20190125
  Receipt Date: 20190424
  Transmission Date: 20190711
  Serious: Yes (Other)
  Sender: FDA-Public Use
  Company Number: US-GILEAD-2019-0386672

PATIENT
  Age: 75 Year
  Sex: Female

DRUGS (3)
  1. ADEMPAS [Concomitant]
     Active Substance: RIOCIGUAT
     Dosage: 2.5 MG, TID
     Route: 065
  2. AMBRISENTAN [Suspect]
     Active Substance: AMBRISENTAN
     Indication: PRODUCT USED FOR UNKNOWN INDICATION
     Dosage: 5 MG, QD
     Route: 065
     Dates: start: 20180403
  3. ADEMPAS [Concomitant]
     Active Substance: RIOCIGUAT
     Dosage: UNK

REACTIONS (7)
  - Epistaxis [Unknown]
  - Dyspepsia [Not Recovered/Not Resolved]
  - Gastrointestinal haemorrhage [Unknown]
  - Feeling abnormal [Not Recovered/Not Resolved]
  - Anaemia [Not Recovered/Not Resolved]
  - Asthenia [Unknown]
  - Dyspnoea [Unknown]
